FAERS Safety Report 21953286 (Version 1)
Quarter: 2023Q1

REPORT INFORMATION
  Report Type: Spontaneous
  Country: CA (occurrence: CA)
  Receive Date: 20230204
  Receipt Date: 20230204
  Transmission Date: 20230418
  Serious: Yes (Other)
  Sender: FDA-Public Use
  Company Number: None

PATIENT
  Age: 59 Year
  Sex: Female

DRUGS (12)
  1. METHOTREXATE [Suspect]
     Active Substance: METHOTREXATE
     Indication: Product used for unknown indication
     Route: 058
  2. AMLODIPINE [Concomitant]
     Active Substance: AMLODIPINE BESYLATE
  3. CALCIUM [Concomitant]
     Active Substance: CALCIUM
     Dosage: 1 EVERY 1 DAYS
  4. FOLIC ACID [Concomitant]
     Active Substance: FOLIC ACID
  5. IRON [Concomitant]
     Active Substance: IRON
  6. MIRABEGRON [Concomitant]
     Active Substance: MIRABEGRON
     Dosage: (EXTENDED- RELEASE)
  7. PERINDOPRIL [Concomitant]
     Active Substance: PERINDOPRIL
  8. PREDNISONE [Concomitant]
     Active Substance: PREDNISONE
     Dosage: EVERY 1 DAYS
     Route: 065
  9. TOLTERODINE [Concomitant]
     Active Substance: TOLTERODINE
  10. VITAMIN D [Concomitant]
     Active Substance: VITAMIN D NOS
  11. METHOTREXATE [Suspect]
     Active Substance: METHOTREXATE
     Indication: Product used for unknown indication
     Dosage: 1 EVERY 1 WEEKS
     Route: 058
  12. METHOTREXATE [Suspect]
     Active Substance: METHOTREXATE
     Indication: Product used for unknown indication
     Route: 058

REACTIONS (7)
  - Antineutrophil cytoplasmic antibody increased [Not Recovered/Not Resolved]
  - Glucose tolerance impaired [Not Recovered/Not Resolved]
  - Impaired quality of life [Not Recovered/Not Resolved]
  - Nausea [Not Recovered/Not Resolved]
  - Neuropathy peripheral [Not Recovered/Not Resolved]
  - Urine albumin/creatinine ratio decreased [Not Recovered/Not Resolved]
  - White blood cell count increased [Not Recovered/Not Resolved]
